FAERS Safety Report 25698529 (Version 2)
Quarter: 2025Q3

REPORT INFORMATION
  Report Type: Spontaneous
  Country: US (occurrence: US)
  Receive Date: 20250819
  Receipt Date: 20250827
  Transmission Date: 20251020
  Serious: No
  Sender: ELI LILLY AND COMPANY
  Company Number: US-ELI_LILLY_AND_COMPANY-US202508016496

PATIENT

DRUGS (2)
  1. TRULICITY [Suspect]
     Active Substance: DULAGLUTIDE
     Indication: Product used for unknown indication
     Route: 065
  2. TRULICITY [Suspect]
     Active Substance: DULAGLUTIDE
     Route: 065

REACTIONS (12)
  - Presyncope [Unknown]
  - Feeding disorder [Unknown]
  - Weight decreased [Unknown]
  - Hyperhidrosis [Unknown]
  - Dyschezia [Unknown]
  - Pain [Unknown]
  - Heart rate increased [Unknown]
  - Asthenia [Unknown]
  - Fatigue [Unknown]
  - Impaired gastric emptying [Unknown]
  - Abdominal pain upper [Unknown]
  - Vomiting [Unknown]
